FAERS Safety Report 16577164 (Version 4)
Quarter: 2019Q3

REPORT INFORMATION
  Report Type: Report from Study
  Country: DE (occurrence: DE)
  Receive Date: 20190716
  Receipt Date: 20190828
  Transmission Date: 20191004
  Serious: Yes (Life-Threatening, Hospitalization)
  Sender: FDA-Public Use
  Company Number: DE-ROCHE-2350583

PATIENT
  Age: 51 Year
  Sex: Male
  Weight: 84.1 kg

DRUGS (4)
  1. ATEZOLIZUMAB. [Suspect]
     Active Substance: ATEZOLIZUMAB
     Indication: MALIGNANT NEOPLASM OF UNKNOWN PRIMARY SITE
     Dosage: DATE OF MOST RECENT DOSE OF ATEZOLIZUMAB (1200 MG) PRIOR TO EVENT ONSET: 13/JUN/2019?ON 30/JUL/2019,
     Route: 042
     Dates: start: 20190613
  2. CARBOPLATIN. [Suspect]
     Active Substance: CARBOPLATIN
     Indication: MALIGNANT NEOPLASM OF UNKNOWN PRIMARY SITE
     Dosage: AT THE AREA UNDER THE CURVE (AUC) DOSE?DATE OF MOST RECENT DOSE (750 MG) OF CARBOPLATIN PRIOR TO EVE
     Route: 042
     Dates: start: 20190523
  3. PACLITAXEL. [Suspect]
     Active Substance: PACLITAXEL
     Indication: MALIGNANT NEOPLASM OF UNKNOWN PRIMARY SITE
     Dosage: UP TO 6 CYCLES?DATE OF MOST RECENT DOSE OF PACLITAXEL (343 MG) PRIOR TO EVENT ONSET: 13/JUN/2019
     Route: 042
     Dates: start: 20190502
  4. IBUPROFEN. [Concomitant]
     Active Substance: IBUPROFEN
     Route: 048
     Dates: start: 20190121

REACTIONS (2)
  - Gallbladder rupture [Unknown]
  - Cholestasis [Recovered/Resolved]

NARRATIVE: CASE EVENT DATE: 20190702
